FAERS Safety Report 5726648-X (Version None)
Quarter: 2008Q2

REPORT INFORMATION
  Report Type: 
  Country: None (occurrence: None)
  Receive Date: 20080502
  Receipt Date: 20080423
  Transmission Date: 20081010
  Serious: Yes (Hospitalization, Other)
  Sender: FDA-Public Use
  Company Number: PHHO2006DE13295

PATIENT
  Age: 68 Year
  Sex: Male
  Weight: 85.5 kg

DRUGS (5)
  1. MYFORTIC [Suspect]
     Indication: RENAL TRANSPLANT
     Dosage: 2160 MG / DAY
     Route: 048
     Dates: start: 20060724, end: 20060810
  2. MYFORTIC [Suspect]
     Dosage: 360 MG/DAILY
     Route: 048
     Dates: start: 20060907, end: 20060909
  3. MYFORTIC [Suspect]
     Dosage: 720 MG, DAILY
     Route: 048
  4. MYFORTIC [Suspect]
     Route: 048
     Dates: start: 20060817, end: 20060820
  5. SANDIMMUNE [Concomitant]
     Indication: RENAL TRANSPLANT
     Dosage: 550 MG, DAILY
     Dates: start: 20060724

REACTIONS (10)
  - BLOOD CREATININE INCREASED [None]
  - CELLULITIS [None]
  - CYTOMEGALOVIRUS INFECTION [None]
  - ESCHERICHIA BACTERAEMIA [None]
  - IMPAIRED HEALING [None]
  - PERINEPHRIC ABSCESS [None]
  - PYELONEPHRITIS [None]
  - STAPHYLOCOCCAL INFECTION [None]
  - WOUND INFECTION [None]
  - WOUND INFECTION STAPHYLOCOCCAL [None]
